FAERS Safety Report 10331206 (Version 1)
Quarter: 2014Q3

REPORT INFORMATION
  Report Type: Spontaneous
  Country: US (occurrence: US)
  Receive Date: 20140722
  Receipt Date: 20140722
  Transmission Date: 20150326
  Serious: Yes (Other)
  Sender: FDA-Public Use
  Company Number: US-AMGEN-USASP2014053632

PATIENT
  Age: 64 Year
  Sex: Female

DRUGS (3)
  1. PROLIA [Suspect]
     Active Substance: DENOSUMAB
     Indication: OSTEOPOROSIS POSTMENOPAUSAL
     Dosage: UNK
     Route: 065
     Dates: start: 201310
  2. ALPRAZOLAM. [Concomitant]
     Active Substance: ALPRAZOLAM
     Indication: SLEEP DISORDER
  3. DEPAKOTE [Concomitant]
     Active Substance: DIVALPROEX SODIUM
     Indication: DEPRESSION
     Dosage: UNK

REACTIONS (5)
  - Osteonecrosis of jaw [Unknown]
  - Oral pain [Unknown]
  - Musculoskeletal pain [Unknown]
  - Device failure [Unknown]
  - Neck pain [Unknown]

NARRATIVE: CASE EVENT DATE: 201404
